FAERS Safety Report 10348823 (Version 2)
Quarter: 2014Q3

REPORT INFORMATION
  Report Type: Spontaneous
  Country: GB (occurrence: None)
  Receive Date: 20140725
  Receipt Date: 20140728
  Transmission Date: 20150326
  Serious: Yes (Hospitalization, Other)
  Sender: FDA-Public Use
  Company Number: AUR-APL-2014-07901

PATIENT
  Sex: Male

DRUGS (6)
  1. TRAMADOL [Suspect]
     Active Substance: TRAMADOL
     Indication: BACK PAIN
  2. PARACETAMOL (PARACETAMOL) [Concomitant]
     Active Substance: ACETAMINOPHEN
  3. AMOXICILLIN+CLAVULANIC ACID [Suspect]
     Active Substance: AMOXICILLIN\CLAVULANIC ACID
     Indication: PRODUCT USED FOR UNKNOWN INDICATION
     Dates: start: 2010
  4. FLIXOTIDE (FLUTICASONE PROPIONATE) [Concomitant]
     Active Substance: FLUTICASONE PROPIONATE
  5. PREDNISOLONE (PREDNISOLONE) [Suspect]
     Active Substance: PREDNISOLONE
     Indication: LOWER RESPIRATORY TRACT INFECTION
  6. BUTRANS [Concomitant]
     Active Substance: BUPRENORPHINE

REACTIONS (11)
  - Asthma [None]
  - Spinal cord disorder [None]
  - Lower respiratory tract infection [None]
  - Drug ineffective [None]
  - Chest pain [None]
  - Anaphylactic shock [None]
  - Pain [None]
  - Hypoaesthesia [None]
  - Pulmonary thrombosis [None]
  - Back pain [None]
  - Condition aggravated [None]

NARRATIVE: CASE EVENT DATE: 2010
